FAERS Safety Report 17660941 (Version 2)
Quarter: 2021Q3

REPORT INFORMATION
  Report Type: Spontaneous
  Country: US (occurrence: US)
  Receive Date: 20200413
  Receipt Date: 20210824
  Transmission Date: 20211014
  Serious: No
  Sender: FDA-Public Use
  Company Number: US-SA-2020SA090729

PATIENT
  Age: 61 Year
  Sex: Male

DRUGS (6)
  1. PREDNISONE. [Suspect]
     Active Substance: PREDNISONE
     Dosage: UNK
  2. CYCLOBENZAPRINE HCL [Concomitant]
     Active Substance: CYCLOBENZAPRINE HYDROCHLORIDE
     Dosage: 10 MG
  3. THALOMID [Concomitant]
     Active Substance: THALIDOMIDE
     Dosage: UNK
  4. MELOXICAM. [Concomitant]
     Active Substance: MELOXICAM
     Dosage: UNK
  5. MONTELUKAST SODIUM. [Concomitant]
     Active Substance: MONTELUKAST SODIUM
     Dosage: UNK
  6. DUPIXENT [Suspect]
     Active Substance: DUPILUMAB
     Indication: DERMATITIS ATOPIC
     Dosage: 300 MG, QOW
     Route: 058
     Dates: start: 202002

REACTIONS (4)
  - Product storage error [Unknown]
  - Rash [Unknown]
  - Drug interaction [Unknown]
  - Peripheral swelling [Unknown]

NARRATIVE: CASE EVENT DATE: 202003
